FAERS Safety Report 24916629 (Version 1)
Quarter: 2025Q1

REPORT INFORMATION
  Report Type: Spontaneous
  Country: US (occurrence: None)
  Receive Date: 20250131
  Receipt Date: 20250131
  Transmission Date: 20250408
  Serious: Yes (Death, Hospitalization)
  Sender: FDA-CTU
  Company Number: None

PATIENT
  Age: 79 Year
  Sex: Male

DRUGS (9)
  1. PIRFENIDONE [Suspect]
     Active Substance: PIRFENIDONE
     Indication: Idiopathic pulmonary fibrosis
     Dosage: 801 MG QD ORAL?
     Route: 048
     Dates: start: 20230329, end: 20250125
  2. PREDNISONE [Concomitant]
     Active Substance: PREDNISONE
  3. FAMOTIDINE [Concomitant]
     Active Substance: FAMOTIDINE
  4. ALBUTEROL SULFATE [Concomitant]
     Active Substance: ALBUTEROL SULFATE
  5. AMLODIPINE [Concomitant]
     Active Substance: AMLODIPINE BESYLATE
  6. FLUTICASONE [Concomitant]
     Active Substance: FLUTICASONE
  7. IMIPRAMINE [Concomitant]
     Active Substance: IMIPRAMINE
  8. MORPHINE CONCENTRATE [Concomitant]
  9. TRAZODONE [Concomitant]
     Active Substance: TRAZODONE HYDROCHLORIDE

REACTIONS (1)
  - Pneumonia [None]

NARRATIVE: CASE EVENT DATE: 20250124
